FAERS Safety Report 10017659 (Version 1)
Quarter: 2014Q1

REPORT INFORMATION
  Report Type: Spontaneous
  Country: US (occurrence: None)
  Receive Date: 20140313
  Receipt Date: 20140313
  Transmission Date: 20141002
  Serious: Yes (Other)
  Sender: FDA-Public Use
  Company Number: None

PATIENT
  Age: 48 Year
  Sex: Female
  Weight: 108.86 kg

DRUGS (9)
  1. DEXILANT [Suspect]
     Indication: GASTROOESOPHAGEAL REFLUX DISEASE
     Dosage: ONE A DAY , ONCE A DAY
     Route: 048
     Dates: start: 201310, end: 20140217
  2. METFORMIN [Concomitant]
  3. QUINAPRIL/HCTZ [Concomitant]
  4. SIMVASTATIN [Concomitant]
  5. MELOXICAM [Concomitant]
  6. LYRICA [Concomitant]
  7. NEXIUM [Concomitant]
  8. VITAMIN C [Concomitant]
  9. VITAMIN E [Concomitant]

REACTIONS (13)
  - Abdominal pain upper [None]
  - Haematochezia [None]
  - Diarrhoea [None]
  - Flatulence [None]
  - Throat tightness [None]
  - Mucous stools [None]
  - Dyspnoea exertional [None]
  - Clostridium difficile colitis [None]
  - Arthralgia [None]
  - Headache [None]
  - Balance disorder [None]
  - Fall [None]
  - Walking aid user [None]
